FAERS Safety Report 9812044 (Version 2)
Quarter: 2014Q1

REPORT INFORMATION
  Report Type: Spontaneous
  Country: US (occurrence: US)
  Receive Date: 20140110
  Receipt Date: 20140110
  Transmission Date: 20141002
  Serious: Yes (Hospitalization)
  Sender: FDA-Public Use
  Company Number: US-SA-2013SA107896

PATIENT
  Age: 59 Year
  Sex: Male
  Weight: 56.7 kg

DRUGS (6)
  1. PLAVIX [Suspect]
     Indication: FEMORAL ARTERY OCCLUSION
     Route: 048
     Dates: start: 20130913, end: 20130925
  2. LOPRESSOR [Concomitant]
  3. ACCUPRIL [Concomitant]
  4. ECOTRIN [Concomitant]
  5. OMEGA 3 [Concomitant]
  6. VITAMINS NOS [Concomitant]

REACTIONS (2)
  - Gastrointestinal haemorrhage [Recovered/Resolved]
  - Hypotension [Recovered/Resolved]
